FAERS Safety Report 14142412 (Version 3)
Quarter: 2021Q1

REPORT INFORMATION
  Report Type: Report from Study
  Country: CR (occurrence: CR)
  Receive Date: 20171030
  Receipt Date: 20210316
  Transmission Date: 20210419
  Serious: Yes (Other)
  Sender: FDA-Public Use
  Company Number: PHHY2017CR159293

PATIENT
  Age: 42 Year
  Sex: Female

DRUGS (2)
  1. SCAPHO [Suspect]
     Active Substance: SECUKINUMAB
     Dosage: 300 MG, QMO
     Route: 058
     Dates: start: 20170925
  2. SCAPHO [Suspect]
     Active Substance: SECUKINUMAB
     Indication: ANKYLOSING SPONDYLITIS
     Dosage: 150 MG
     Route: 065

REACTIONS (8)
  - Dermatitis [Unknown]
  - Blindness [Unknown]
  - Hypertension [Unknown]
  - Arthralgia [Unknown]
  - Vision blurred [Unknown]
  - Back pain [Unknown]
  - Uveitis [Recovering/Resolving]
  - Ocular discomfort [Unknown]
